FAERS Safety Report 5809302-5 (Version None)
Quarter: 2008Q3

REPORT INFORMATION
  Report Type: 
  Country: None (occurrence: None)
  Receive Date: 20080714
  Receipt Date: 20080623
  Transmission Date: 20090109
  Serious: No
  Sender: FDA-Public Use
  Company Number: US-BOEHRINGER INGELHEIM GMBH, GERMANY-2008-BP-09809BP

PATIENT
  Sex: Female

DRUGS (3)
  1. MIRAPEX [Suspect]
     Indication: RESTLESS LEGS SYNDROME
     Route: 048
     Dates: start: 20050101
  2. NEXIUM [Concomitant]
  3. MEDICATIONS [Concomitant]

REACTIONS (5)
  - ACTIVITIES OF DAILY LIVING IMPAIRED [None]
  - LIMB DISCOMFORT [None]
  - MOOD DISORDER DUE TO A GENERAL MEDICAL CONDITION [None]
  - MOVEMENT DISORDER [None]
  - RESTLESS LEGS SYNDROME [None]
